FAERS Safety Report 17086587 (Version 2)
Quarter: 2019Q4

REPORT INFORMATION
  Report Type: Spontaneous
  Country: US (occurrence: US)
  Receive Date: 20191128
  Receipt Date: 20191218
  Transmission Date: 20200122
  Serious: Yes (Death, Other)
  Sender: FDA-Public Use
  Company Number: US-ROCHE-2477407

PATIENT
  Age: 56 Year
  Sex: Female
  Weight: 45.4 kg

DRUGS (7)
  1. FIORICET [Concomitant]
     Active Substance: ACETAMINOPHEN\BUTALBITAL\CAFFEINE
  2. OCREVUS [Suspect]
     Active Substance: OCRELIZUMAB
     Dosage: NO
     Route: 042
     Dates: start: 20181127
  3. PROZAC [Concomitant]
     Active Substance: FLUOXETINE HYDROCHLORIDE
  4. OCREVUS [Suspect]
     Active Substance: OCRELIZUMAB
     Indication: RELAPSING-REMITTING MULTIPLE SCLEROSIS
     Dosage: NO
     Route: 042
     Dates: start: 20181113
  5. OCREVUS [Suspect]
     Active Substance: OCRELIZUMAB
     Dosage: NO
     Route: 042
     Dates: start: 20190514
  6. MORPHINE [Concomitant]
     Active Substance: MORPHINE
     Indication: PAIN
  7. AMPYRA [Concomitant]
     Active Substance: DALFAMPRIDINE
     Indication: RELAPSING-REMITTING MULTIPLE SCLEROSIS

REACTIONS (10)
  - Hyperhidrosis [Unknown]
  - Pyrexia [Unknown]
  - B-lymphocyte count decreased [Unknown]
  - JC polyomavirus test positive [Unknown]
  - Cough [Unknown]
  - Abdominal pain upper [Unknown]
  - Gastric disorder [Unknown]
  - Sepsis [Fatal]
  - Pneumonitis [Unknown]
  - Intestinal dilatation [Fatal]

NARRATIVE: CASE EVENT DATE: 20191104
